FAERS Safety Report 7510008-5 (Version None)
Quarter: 2011Q2

REPORT INFORMATION
  Report Type: 
  Country: None (occurrence: None)
  Receive Date: 20110527
  Receipt Date: 20110522
  Transmission Date: 20111010
  Serious: Yes (Hospitalization)
  Sender: FDA-Public Use
  Company Number: US-US-EMD SERONO, INC.-7061454

PATIENT
  Sex: Female

DRUGS (5)
  1. MULTI-VITAMIN [Concomitant]
  2. ORTHO TRICLINEUNSURE [Concomitant]
  3. REBIF [Suspect]
     Indication: MULTIPLE SCLEROSIS
     Route: 058
     Dates: start: 20090824, end: 20110101
  4. EXCEDRIN PM [Concomitant]
  5. BENADRYL [Concomitant]

REACTIONS (5)
  - HAEMORRHAGE [None]
  - MULTIPLE SCLEROSIS RELAPSE [None]
  - PLATELET COUNT DECREASED [None]
  - CONTUSION [None]
  - DEHYDRATION [None]
